FAERS Safety Report 5491200-0 (Version None)
Quarter: 2007Q4

REPORT INFORMATION
  Report Type: 
  Country: None (occurrence: None)
  Receive Date: 20071019
  Receipt Date: 20071009
  Transmission Date: 20080405
  Serious: Yes (Hospitalization, Other)
  Sender: FDA-Public Use
  Company Number: BR-PFIZER INC-2007086181

PATIENT
  Age: 77 Year
  Sex: Male

DRUGS (1)
  1. FRONTAL [Suspect]
     Indication: INSOMNIA
     Dosage: FREQ:AS NEEDED
     Route: 048

REACTIONS (4)
  - PROSTATE CANCER [None]
  - PROSTATIC OPERATION [None]
  - URINARY INCONTINENCE [None]
  - URINARY RETENTION [None]
